FAERS Safety Report 9435835 (Version 1)
Quarter: 2013Q3

REPORT INFORMATION
  Report Type: Report from Study
  Country: SE (occurrence: SE)
  Receive Date: 20130801
  Receipt Date: 20130801
  Transmission Date: 20140515
  Serious: Yes (Death)
  Sender: FDA-Public Use
  Company Number: SE-BAYER-2013-091477

PATIENT
  Age: 55 Year
  Sex: Male

DRUGS (3)
  1. ACETYLSALICYLIC ACID({=100 MG) [Suspect]
     Indication: THROMBOSIS PROPHYLAXIS
  2. HEPARIN [Suspect]
     Indication: THROMBOSIS PROPHYLAXIS
  3. WARFARIN [Suspect]
     Indication: THROMBOSIS PROPHYLAXIS

REACTIONS (2)
  - Haemorrhagic stroke [Fatal]
  - Labelled drug-drug interaction medication error [None]
